FAERS Safety Report 5994092-6 (Version None)
Quarter: 2008Q4

REPORT INFORMATION
  Report Type: 
  Country: None (occurrence: None)
  Receive Date: 20081212
  Receipt Date: 20081202
  Transmission Date: 20090506
  Serious: Yes (Death, Hospitalization, Other)
  Sender: FDA-Public Use
  Company Number: NL-JNJFOC-20080802881

PATIENT
  Age: 56 Year
  Sex: Male

DRUGS (4)
  1. INFLIXIMAB [Suspect]
     Indication: CROHN'S DISEASE
     Route: 042
  2. INFLIXIMAB [Suspect]
     Indication: INFLAMMATORY BOWEL DISEASE
     Dosage: 3 INFUSIONS
     Route: 042
  3. CORTICOSTEROIDS [Concomitant]
  4. AZATHIOPRINE [Concomitant]

REACTIONS (1)
  - COLORECTAL CANCER [None]
